FAERS Safety Report 15579160 (Version 1)
Quarter: 2018Q4

REPORT INFORMATION
  Report Type: Spontaneous
  Country: US (occurrence: US)
  Receive Date: 20181102
  Receipt Date: 20181102
  Transmission Date: 20190205
  Serious: No
  Sender: FDA-Public Use
  Company Number: US-SA-2018SA298650

PATIENT
  Age: 93 Year
  Sex: Female

DRUGS (2)
  1. NAPROXEN. [Suspect]
     Active Substance: NAPROXEN
  2. ACT DRY MOUTH LOZENGES [Suspect]
     Active Substance: XYLITOL
     Route: 048

REACTIONS (1)
  - Renal disorder [Unknown]
